FAERS Safety Report 20510427 (Version 2)
Quarter: 2022Q2

REPORT INFORMATION
  Report Type: Spontaneous
  Country: US (occurrence: None)
  Receive Date: 20220224
  Receipt Date: 20220412
  Transmission Date: 20220721
  Serious: Yes (Other)
  Sender: FDA-Public Use
  Company Number: 2022A076243

PATIENT
  Age: 634 Month
  Sex: Male
  Weight: 108.9 kg

DRUGS (1)
  1. IMFINZI [Suspect]
     Active Substance: DURVALUMAB
     Indication: Lung neoplasm malignant
     Dosage: EVERY FOUR WEEKS
     Route: 042
     Dates: start: 202111

REACTIONS (3)
  - Full blood count abnormal [Unknown]
  - Fall [Unknown]
  - Autoimmune myositis [Not Recovered/Not Resolved]

NARRATIVE: CASE EVENT DATE: 20220101
